FAERS Safety Report 5899645-1 (Version None)
Quarter: 2008Q3

REPORT INFORMATION
  Report Type: 
  Country: None (occurrence: None)
  Receive Date: 20080926
  Receipt Date: 20080917
  Transmission Date: 20090109
  Serious: Yes (Hospitalization, Other)
  Sender: FDA-Public Use
  Company Number: US-BAYER-200833879NA

PATIENT
  Age: 67 Year
  Sex: Male
  Weight: 98 kg

DRUGS (13)
  1. CIPROFLOXACIN [Suspect]
     Indication: PROSTATE INFECTION
     Dosage: TOTAL DAILY DOSE: 1500 MG  UNIT DOSE: 750 MG
     Route: 048
     Dates: start: 20060901, end: 20060912
  2. SUTENT [Suspect]
     Indication: RENAL CELL CARCINOMA
     Dosage: TOTAL DAILY DOSE: 25 MG
     Route: 048
     Dates: start: 20050902
  3. ARIXTRA [Concomitant]
     Route: 058
     Dates: start: 20060523
  4. ATENOLOL [Concomitant]
     Dosage: TOTAL DAILY DOSE: 50 MG
     Route: 048
     Dates: start: 19850101
  5. AVODART [Concomitant]
     Dosage: TOTAL DAILY DOSE: 0.5 MG
     Route: 048
     Dates: start: 19950101
  6. CLONIDINE [Concomitant]
     Dosage: TOTAL DAILY DOSE: 0.2 MG
     Route: 048
     Dates: start: 20040701
  7. LORAZEPAM [Concomitant]
     Route: 048
     Dates: start: 20040701
  8. MULTI-VITAMIN [Concomitant]
     Route: 048
     Dates: start: 20040101
  9. NORVASC [Concomitant]
     Dosage: TOTAL DAILY DOSE: 5 MG
     Route: 048
     Dates: start: 20040101
  10. OXYCODONE HCL [Concomitant]
     Route: 048
     Dates: start: 20051127
  11. PREVACID [Concomitant]
     Dosage: TOTAL DAILY DOSE: 30 MG
     Route: 048
     Dates: start: 20051004
  12. SULFADIAZINE SILVER [Concomitant]
     Dates: start: 20060523
  13. PYRIDOXINE HYDROCHLORIDE [Concomitant]
     Dosage: TOTAL DAILY DOSE: 0.5 MG
     Route: 048
     Dates: start: 20051019

REACTIONS (4)
  - ABDOMINAL PAIN [None]
  - CLOSTRIDIUM DIFFICILE TOXIN TEST POSITIVE [None]
  - FOOD POISONING [None]
  - VOMITING [None]
